FAERS Safety Report 25307332 (Version 2)
Quarter: 2025Q2

REPORT INFORMATION
  Report Type: Spontaneous
  Country: IT (occurrence: None)
  Receive Date: 20250513
  Receipt Date: 20250514
  Transmission Date: 20250717
  Serious: Yes (Life-Threatening, Hospitalization, Other)
  Sender: INCYTE
  Company Number: IT-002147023-NVSC2025IT076298

PATIENT
  Age: 4 Decade

DRUGS (13)
  1. RUXOLITINIB [Suspect]
     Active Substance: RUXOLITINIB
     Indication: Immune effector cell-associated HLH-like syndrome
     Dosage: 10 MG, BID (ON DAY +9)
  2. TOCILIZUMAB [Suspect]
     Active Substance: TOCILIZUMAB
     Indication: Cytokine release syndrome
     Dosage: 8 MG/KG, TID (FOR 24 HOURS, ON DAY +3)
  3. DEXAMETHASONE [Suspect]
     Active Substance: DEXAMETHASONE
     Indication: Cytokine release syndrome
     Dosage: 10 MG, Q6H
  4. ANAKINRA [Suspect]
     Active Substance: ANAKINRA
     Indication: Cytokine release syndrome
     Dosage: 100 MG, Q6H (ON DAY +5)
  5. ANAKINRA [Suspect]
     Active Substance: ANAKINRA
     Dosage: 200 MG, Q6H (ON DAY +7, (8 MG/KG/DAY))
  6. SILTUXIMAB [Suspect]
     Active Substance: SILTUXIMAB
     Indication: Cytokine release syndrome
  7. SILTUXIMAB [Suspect]
     Active Substance: SILTUXIMAB
     Indication: Prophylaxis
  8. EMAPALUMAB [Suspect]
     Active Substance: EMAPALUMAB
     Indication: Immune effector cell-associated HLH-like syndrome
     Dosage: 1 MG/KG, QW2 (FROM DAY +11 FOR 2 WEEKS)
  9. EMAPALUMAB [Suspect]
     Active Substance: EMAPALUMAB
     Indication: Immune effector cell-associated neurotoxicity syndrome
  10. CYCLOPHOSPHAMIDE [Concomitant]
     Active Substance: CYCLOPHOSPHAMIDE
     Indication: B-cell type acute leukaemia
     Route: 065
  11. CYTARABINE [Concomitant]
     Active Substance: CYTARABINE
     Indication: B-cell type acute leukaemia
     Route: 065
  12. FLUDARABINE [Concomitant]
     Active Substance: FLUDARABINE PHOSPHATE
     Indication: B-cell type acute leukaemia
     Route: 065
  13. LEVETIRACETAM [Concomitant]
     Active Substance: LEVETIRACETAM
     Indication: Prophylaxis
     Dosage: 750 MG, BID

REACTIONS (6)
  - Coma [Recovered/Resolved]
  - Confusional state [Unknown]
  - Consciousness fluctuating [Unknown]
  - Aphasia [Unknown]
  - Metabolic encephalopathy [Recovering/Resolving]
  - Drug ineffective [Unknown]
